FAERS Safety Report 4837337-8 (Version None)
Quarter: 2005Q4

REPORT INFORMATION
  Report Type: 
  Country: None (occurrence: None)
  Receive Date: 20051128
  Receipt Date: 20051116
  Transmission Date: 20060501
  Serious: Yes (Hospitalization, Other)
  Sender: FDA-Public Use
  Company Number: GB-JNJFOC-20051103912

PATIENT
  Sex: Male
  Weight: 63 kg

DRUGS (7)
  1. REMICADE [Suspect]
     Indication: RHEUMATOID ARTHRITIS
     Dosage: THE PATIENT HAD ONLY RECEIVED ONE DOSE OF INFLIXIMAB
     Route: 042
  2. PREDNISOLONE [Concomitant]
     Route: 065
  3. BECOTIDE [Concomitant]
     Route: 065
  4. COMBIVENT [Concomitant]
     Route: 065
  5. COMBIVENT [Concomitant]
     Route: 065
  6. IBUPROFEN [Concomitant]
     Route: 065
  7. SALBUTAMOL [Concomitant]
     Route: 065

REACTIONS (1)
  - SPINAL FRACTURE [None]
